FAERS Safety Report 5406743-5 (Version None)
Quarter: 2007Q3

REPORT INFORMATION
  Report Type: 
  Country: None (occurrence: None)
  Receive Date: 20070807
  Receipt Date: 20070730
  Transmission Date: 20080115
  Serious: Yes (Hospitalization)
  Sender: FDA-Public Use
  Company Number: PHEH2007US01989

PATIENT
  Age: 36 Year
  Sex: Male
  Weight: 85.8 kg

DRUGS (4)
  1. CLOZARIL [Suspect]
     Indication: SCHIZOPHRENIA
     Dosage: 800 MG, QHS
     Route: 048
  2. K-DUR 10 [Concomitant]
     Dosage: 20 MEQ, UNK
  3. KEPPRA [Concomitant]
     Indication: CONVULSION
     Dosage: 500 MG, UNK
  4. THORAZINE [Concomitant]

REACTIONS (4)
  - BRAIN MASS [None]
  - CENTRAL NERVOUS SYSTEM LYMPHOMA [None]
  - DIFFUSE LARGE B-CELL LYMPHOMA [None]
  - HEADACHE [None]
